FAERS Safety Report 10500465 (Version 1)
Quarter: 2014Q4

REPORT INFORMATION
  Report Type: Spontaneous
  Country: US (occurrence: US)
  Receive Date: 20141006
  Receipt Date: 20141006
  Transmission Date: 20150528
  Serious: No
  Sender: FDA-Public Use
  Company Number: US-AMGEN INC.-USASP2014070110

PATIENT
  Sex: Female

DRUGS (1)
  1. PROLIA [Suspect]
     Active Substance: DENOSUMAB
     Indication: OSTEOPOROSIS POSTMENOPAUSAL
     Dosage: UNK
     Route: 065
     Dates: start: 20140908

REACTIONS (5)
  - Oral discomfort [Unknown]
  - Abdominal discomfort [Recovered/Resolved]
  - Oral pain [Unknown]
  - Feeling abnormal [Unknown]
  - Glossodynia [Unknown]

NARRATIVE: CASE EVENT DATE: 201409
